FAERS Safety Report 9475477 (Version 2)
Quarter: 2013Q3

REPORT INFORMATION
  Report Type: Spontaneous
  Country: US (occurrence: None)
  Receive Date: 20130821
  Receipt Date: 20130904
  Transmission Date: 20140515
  Serious: Yes (Other)
  Sender: FDA-Public Use
  Company Number: USA/USA/13/0034085

PATIENT
  Age: 90 Year
  Sex: Female
  Weight: 61.24 kg

DRUGS (5)
  1. OMEPRAZOLE MAGNESIUM [Suspect]
     Indication: GASTROOESOPHAGEAL REFLUX DISEASE
     Route: 048
     Dates: start: 20130809, end: 20130809
  2. SYNTHROID (LEVOTHYROXINE SODIUM) [Concomitant]
  3. NUVIGIL (ARMODAFINIL) [Concomitant]
  4. CYMBALTA (DOLOXETINE HYDROCHLORIDE) [Concomitant]
  5. ZOCOR (SIMVASTATIN) [Concomitant]

REACTIONS (2)
  - Vision blurred [None]
  - Eye haemorrhage [None]
